FAERS Safety Report 7391820 (Version 2)
Quarter: 2012Q4

REPORT INFORMATION
  Report Type: 
  Country: US (occurrence: US)
  Receive Date: 20100518
  Receipt Date: 20120914
  Transmission Date: 20130627
  Serious: Yes (Hospitalization)
  Sender: FDA-Public Use
  Company Number: US-BAYER-201022312NA

PATIENT
  Age: 30 Year
  Sex: Female

DRUGS (5)
  1. YASMIN [Suspect]
     Route: 048
     Dates: start: 2006
  2. YAZ [Suspect]
     Route: 048
     Dates: end: 200804
  3. MORPHINE SULFATE [Concomitant]
     Indication: CHEST PAIN
     Dosage: 4 milligrams,
  4. VICODIN [Concomitant]
     Dosage: 2 tablets,
  5. PERCOCET [Concomitant]
     Indication: PAIN

REACTIONS (1)
  - Pulmonary embolism [None]
